FAERS Safety Report 4874874-4 (Version None)
Quarter: 2006Q1

REPORT INFORMATION
  Report Type: 
  Country: None (occurrence: None)
  Receive Date: 20060105
  Receipt Date: 20051228
  Transmission Date: 20060701
  Serious: Yes (Other)
  Sender: FDA-Public Use
  Company Number: 2004101759

PATIENT
  Sex: Male
  Weight: 97.5234 kg

DRUGS (19)
  1. ZYRTEC [Suspect]
     Indication: HYPERSENSITIVITY
     Dosage: 10 MG (10 MG, 1 IN 1 D),ORAL
     Route: 048
  2. LIPITOR [Suspect]
     Indication: BLOOD CHOLESTEROL
     Dosage: 40 MG (40 MG, 1 IN 1 D), ORAL
     Route: 048
  3. CELEBREX [Suspect]
     Indication: ARTHRITIS
     Dosage: ORAL
     Route: 048
  4. ACCUPRIL [Suspect]
     Indication: HYPERTENSION
     Dosage: ORAL
     Route: 048
  5. ZITHROMAX [Suspect]
     Indication: NASOPHARYNGITIS
  6. PREDNISONE [Suspect]
     Indication: COUGH
  7. AZITHROMYCIN [Suspect]
     Indication: COUGH
     Dosage: 250 MG
  8. PHENERGAN WITH CODEINE (CHLOROFORM, CITRIC ACID, CODEINE PHOSPHATE, IP [Suspect]
     Indication: COUGH
  9. VITAMINS (VITAMINS) [Concomitant]
  10. VITAMIN E [Concomitant]
  11. SELENIUM (SELENIUM) [Concomitant]
  12. ASPIRIN [Concomitant]
  13. DYAZIDE (HYDROCHLOROTHIAXIE, TRIAMTERENE) [Concomitant]
  14. ADAVIR (FLUTICASONE PROPIONATE, SALMETROL XINAFOATE) [Concomitant]
  15. THEO-DUR [Concomitant]
  16. NEXIUM [Concomitant]
  17. ACTONEL [Concomitant]
  18. IBUPROFEN [Concomitant]
  19. PNEUMOCOCCAL VACCINE (PNEUMOCOCCAL VACCINE) [Concomitant]

REACTIONS (14)
  - ARTHRITIS [None]
  - BACK PAIN [None]
  - BLOOD CHOLESTEROL INCREASED [None]
  - COUGH [None]
  - DRUG INEFFECTIVE [None]
  - DRY MOUTH [None]
  - DYSPHONIA [None]
  - MUSCLE SPASMS [None]
  - NASOPHARYNGITIS [None]
  - PAIN IN EXTREMITY [None]
  - THROAT IRRITATION [None]
  - VIRAL INFECTION [None]
  - WEIGHT DECREASED [None]
  - WEIGHT INCREASED [None]
